FAERS Safety Report 11680381 (Version 3)
Quarter: 2015Q4

REPORT INFORMATION
  Report Type: Spontaneous
  Country: US (occurrence: US)
  Receive Date: 20151027
  Receipt Date: 20151110
  Transmission Date: 20160304
  Serious: No
  Sender: FDA-Public Use
  Company Number: US-ELI_LILLY_AND_COMPANY-US201006006836

PATIENT
  Age: 63 Year
  Sex: Female

DRUGS (5)
  1. FORTEO [Suspect]
     Active Substance: TERIPARATIDE
     Dosage: 20 UG, QD
  2. VITAMIN D [Concomitant]
     Active Substance: CHOLECALCIFEROL
  3. FORTEO [Suspect]
     Active Substance: TERIPARATIDE
     Dosage: 20 UG, DAILY (1/D)
  4. FORTEO [Suspect]
     Active Substance: TERIPARATIDE
     Indication: OSTEOPOROSIS
     Dosage: 20 UG, DAILY (1/D)
     Dates: start: 201006
  5. FORTEO [Suspect]
     Active Substance: TERIPARATIDE
     Dosage: 20 UG, DAILY (1/D)

REACTIONS (11)
  - Sinusitis [Recovering/Resolving]
  - Musculoskeletal pain [Unknown]
  - Myalgia [Unknown]
  - Road traffic accident [Recovered/Resolved]
  - Migraine [Unknown]
  - Myositis [Unknown]
  - Erythema [Unknown]
  - Fear [Unknown]
  - Dizziness [Recovered/Resolved]
  - Blood calcium increased [Recovered/Resolved]
  - Spinal column injury [Unknown]

NARRATIVE: CASE EVENT DATE: 20101025
